FAERS Safety Report 17074091 (Version 4)
Quarter: 2021Q2

REPORT INFORMATION
  Report Type: Spontaneous
  Country: GB (occurrence: GB)
  Receive Date: 20191126
  Receipt Date: 20210428
  Transmission Date: 20210716
  Serious: Yes (Hospitalization, Other)
  Sender: FDA-Public Use
  Company Number: GB-ADVANZ PHARMA-201911002097

PATIENT

DRUGS (26)
  1. LEFLUNOMIDE. [Suspect]
     Active Substance: LEFLUNOMIDE
     Indication: CYTOMEGALOVIRUS INFECTION REACTIVATION
     Dosage: UNKNOWN; SYSTEMIC; LONG?TERM ANTIVIRAL THERAPY
     Route: 065
  2. ANTITHYMOCYTE IMMUNOGLOBULIN (RABBIT) [Suspect]
     Active Substance: LAPINE T-LYMPHOCYTE IMMUNE GLOBULIN
     Indication: IMMUNOSUPPRESSION
     Dosage: 1.5 MILLIGRAM/KILOGRAM, FOR 3 DAYS
     Route: 065
  3. GANCICLOVIR. [Suspect]
     Active Substance: GANCICLOVIR
     Indication: CYTOMEGALOVIRUS CHORIORETINITIS
     Dosage: WEEKLY LEFT EYE INTRAVITREAL GCV (2 MG/0.1 ML) FOR 4 WEEKS
     Route: 031
  4. FOSCARNET [Suspect]
     Active Substance: FOSCARNET
     Indication: CYTOMEGALOVIRUS INFECTION REACTIVATION
     Dosage: 2.4 MG/0.1 ML WAS INITIATED IN THE RIGHT THEN THE LEFT EYE AND REPEATED AT 1?2?WEEK INTERVALS
     Route: 031
  5. AZATHIOPRINE. [Suspect]
     Active Substance: AZATHIOPRINE
     Route: 065
  6. GANCICLOVIR. [Suspect]
     Active Substance: GANCICLOVIR
     Indication: CYTOMEGALOVIRUS VIRAEMIA
     Dosage: 450 MICROGRAM, QD
     Route: 048
  7. GANCICLOVIR. [Suspect]
     Active Substance: GANCICLOVIR
     Indication: CYTOMEGALOVIRUS VIRAEMIA
     Dosage: 2.5 MG/KG, DAILY FOR 4 WEEKS
     Route: 042
  8. VALGANCICLOVIR. [Suspect]
     Active Substance: VALGANCICLOVIR
     Indication: PROPHYLAXIS
     Dosage: 450 MICROGRAM, QD
     Route: 065
  9. TACROLIMUS. [Suspect]
     Active Substance: TACROLIMUS
     Dosage: 2 MG TWICE DAILY
  10. CMV IMMUNOGLOBULIN [Suspect]
     Active Substance: HUMAN CYTOMEGALOVIRUS IMMUNE GLOBULIN
     Indication: CYTOMEGALOVIRUS CHORIORETINITIS
     Dosage: 1 WEEKLY
     Route: 065
  11. CMV IMMUNOGLOBULIN [Suspect]
     Active Substance: HUMAN CYTOMEGALOVIRUS IMMUNE GLOBULIN
     Dosage: 2 MG/KG FOR 4 WEEKS
     Route: 065
  12. GANCICLOVIR. [Suspect]
     Active Substance: GANCICLOVIR
     Indication: CYTOMEGALOVIRUS VIRAEMIA
  13. VALGANCICLOVIR. [Suspect]
     Active Substance: VALGANCICLOVIR
     Indication: CYTOMEGALOVIRUS VIRAEMIA
     Dosage: 450 MG DAILY
     Route: 048
  14. FOSCARNET [Suspect]
     Active Substance: FOSCARNET
     Indication: CYTOMEGALOVIRUS VIRAEMIA
     Dosage: UNKNOWN
     Route: 042
  15. CICLOSPORIN [Suspect]
     Active Substance: CYCLOSPORINE
     Indication: IMMUNOSUPPRESSION
  16. PREDNISOLONE. [Suspect]
     Active Substance: PREDNISOLONE
     Indication: ANTIVIRAL TREATMENT
     Dosage: 5 MG DAILY
     Route: 065
  17. GANCICLOVIR. [Suspect]
     Active Substance: GANCICLOVIR
     Indication: CYTOMEGALOVIRUS CHORIORETINITIS
     Dosage: WEEKLY LEFT EYE INTRAVITREAL GCV (2 MG/0.1 ML) FOR 4 WEEKS
     Route: 042
  18. VALGANCICLOVIR. [Suspect]
     Active Substance: VALGANCICLOVIR
     Indication: CYTOMEGALOVIRUS INFECTION REACTIVATION
  19. TACROLIMUS. [Suspect]
     Active Substance: TACROLIMUS
     Indication: ANTIVIRAL TREATMENT
     Dosage: 2 MILLIGRAM, EVERY 5 DAYS
     Route: 048
  20. AZATHIOPRINE. [Suspect]
     Active Substance: AZATHIOPRINE
     Indication: IMMUNOSUPPRESSION
     Dosage: UNK
     Route: 065
  21. PREDNISOLONE. [Suspect]
     Active Substance: PREDNISOLONE
     Indication: IMMUNOSUPPRESSION
     Dosage: 15 MILLIGRAM DAILY
     Route: 065
  22. SIROLIMUS. [Suspect]
     Active Substance: SIROLIMUS
     Indication: ANTIVIRAL TREATMENT
     Dosage: 1.5 MG DAILY
     Route: 065
  23. CICLOSPORIN [Suspect]
     Active Substance: CYCLOSPORINE
     Indication: IMMUNOSUPPRESSANT DRUG THERAPY
     Dosage: UNK
     Route: 065
  24. METHYLPREDNISOLONE. [Suspect]
     Active Substance: METHYLPREDNISOLONE
     Indication: IMMUNOSUPPRESSANT DRUG THERAPY
     Dosage: UNK
     Route: 042
  25. GANCICLOVIR. [Suspect]
     Active Substance: GANCICLOVIR
     Indication: CYTOMEGALOVIRUS CHORIORETINITIS
     Dosage: 450 MILLIGRAM, QD
     Route: 048
  26. PREDNISOLONE. [Suspect]
     Active Substance: PREDNISOLONE
     Indication: IMMUNOSUPPRESSANT DRUG THERAPY
     Dosage: 8 MG DAILY; FOR 2 MONTHS
     Route: 065

REACTIONS (12)
  - Product use issue [Unknown]
  - Cytomegalovirus viraemia [Recovered/Resolved]
  - Cytomegalovirus infection reactivation [Recovered/Resolved]
  - Pneumonia cytomegaloviral [Recovered/Resolved]
  - Drug resistance [Recovered/Resolved]
  - Off label use [Unknown]
  - Retinal detachment [Recovered/Resolved]
  - Cytomegalovirus chorioretinitis [Recovered/Resolved]
  - Nephropathy toxic [Recovered/Resolved]
  - Renal impairment [Recovered/Resolved]
  - Retinal scar [Recovered/Resolved]
  - Visual impairment [Not Recovered/Not Resolved]
